FAERS Safety Report 7479579-1 (Version None)
Quarter: 2011Q2

REPORT INFORMATION
  Report Type: 
  Country: None (occurrence: None)
  Receive Date: 20110513
  Receipt Date: 20110418
  Transmission Date: 20111010
  Serious: Yes (Life-Threatening, Hospitalization)
  Sender: FDA-Public Use
  Company Number: JP-ABBOTT-10P-087-0668100-00

PATIENT
  Age: 80 Year
  Sex: Male

DRUGS (4)
  1. CANDESARTAN CILEXETIL [Concomitant]
     Indication: HYPERTENSION
     Route: 048
     Dates: end: 20090928
  2. BICALUTAMIDE [Suspect]
     Indication: PROSTATE CANCER STAGE I
     Route: 048
     Dates: start: 20080222, end: 20090928
  3. LEUPROLIDE ACETATE [Suspect]
     Indication: PROSTATE CANCER STAGE I
     Route: 058
     Dates: start: 20080222, end: 20090717
  4. ADALAT [Concomitant]
     Indication: HYPERTENSION
     Dosage: MORNING,10 MG EVENING,30 MG, 2 IN 1D
     Route: 048
     Dates: end: 20090928

REACTIONS (1)
  - ACUTE MYOCARDIAL INFARCTION [None]
